FAERS Safety Report 12937769 (Version 1)
Quarter: 2016Q4

REPORT INFORMATION
  Report Type: Spontaneous
  Country: US (occurrence: US)
  Receive Date: 20161114
  Receipt Date: 20161114
  Transmission Date: 20170207
  Serious: No
  Sender: FDA-Public Use
  Company Number: US-MYLANLABS-2016M1039740

PATIENT
  Sex: Female

DRUGS (1)
  1. ETHINYLESTRADIOL/NORELGESTROMIN TRANSDERMAL PATCH [Suspect]
     Active Substance: ETHINYL ESTRADIOL\NORELGESTROMIN
     Dosage: UNK

REACTIONS (7)
  - Application site erythema [Unknown]
  - Application site haemorrhage [Unknown]
  - Application site papules [Unknown]
  - Application site dryness [Unknown]
  - Application site burn [Unknown]
  - Application site irritation [Unknown]
  - Application site pruritus [Unknown]
